FAERS Safety Report 5695970-8 (Version None)
Quarter: 2008Q2

REPORT INFORMATION
  Report Type: 
  Country: None (occurrence: None)
  Receive Date: 20080407
  Receipt Date: 20080326
  Transmission Date: 20081010
  Serious: Yes (Hospitalization)
  Sender: FDA-Public Use
  Company Number: IN-ELI_LILLY_AND_COMPANY-IN200803001203

PATIENT
  Sex: Male
  Weight: 42 kg

DRUGS (19)
  1. PEMETREXED [Suspect]
     Indication: NON-SMALL CELL LUNG CANCER
     Dosage: 500 MG/M2, ON D1,22,43
     Route: 042
     Dates: start: 20080205
  2. CISPLATIN [Suspect]
     Indication: NON-SMALL CELL LUNG CANCER
     Dosage: 75 MG/M2, ON D1,8,22,29,43
     Route: 042
     Dates: start: 20080205
  3. RADIATION [Suspect]
     Indication: NON-SMALL CELL LUNG CANCER
     Dosage: 2 CENTIGRAV, ON D1-49
     Dates: start: 20080205
  4. RADIATION [Suspect]
     Dates: start: 20080307
  5. FOLIC ACID [Concomitant]
     Indication: PROPHYLAXIS
     Dates: start: 20080119
  6. VITAMIN B-12 [Concomitant]
     Indication: PROPHYLAXIS
     Dates: start: 20080119
  7. TRAMADOL HCL [Concomitant]
     Indication: ANALGESIC THERAPY
     Dates: start: 20080128, end: 20080303
  8. PANTOPRAZOLE SODIUM [Concomitant]
     Indication: ANTACID THERAPY
     Dates: start: 20080206, end: 20080303
  9. DOMPERIDONE [Concomitant]
     Indication: ANTIEMETIC SUPPORTIVE CARE
     Dates: start: 20080205, end: 20080303
  10. PIROXICAM                          /00500401/ [Concomitant]
     Indication: ANALGESIC THERAPY
     Dates: start: 20080101, end: 20080127
  11. RANITIDINE                         /00550801/ [Concomitant]
     Indication: ANTACID THERAPY
     Dates: start: 20080101, end: 20080205
  12. IRON POLYMALTOSE [Concomitant]
     Dates: start: 20080202, end: 20080219
  13. SUCRALFATE [Concomitant]
     Indication: ANALGESIC THERAPY
     Dates: start: 20080213, end: 20080303
  14. OXETACAINE [Concomitant]
     Indication: ANALGESIC THERAPY
     Dates: start: 20080213, end: 20080303
  15. ASPIRIN [Concomitant]
     Indication: ANALGESIC THERAPY
     Dates: start: 20080213, end: 20080303
  16. DEXTROMETHORPHAN HYDROBROMIDE [Concomitant]
     Indication: ANTITUSSIVE THERAPY
     Dates: start: 20080219, end: 20080303
  17. CHLORPHENIRAMINE MALEATE [Concomitant]
     Indication: ANTITUSSIVE THERAPY
     Dates: start: 20080219, end: 20080303
  18. GUAIFENESIN [Concomitant]
     Indication: ANTITUSSIVE THERAPY
     Dates: start: 20080219, end: 20080303
  19. AMMONIUM CHLORIDE                  /00178201/ [Concomitant]
     Indication: ANTITUSSIVE THERAPY
     Dates: start: 20080219, end: 20080303

REACTIONS (2)
  - FEBRILE NEUTROPENIA [None]
  - MEDIASTINITIS [None]
